FAERS Safety Report 25799819 (Version 1)
Quarter: 2025Q3

REPORT INFORMATION
  Report Type: Spontaneous
  Country: US (occurrence: US)
  Receive Date: 20250914
  Receipt Date: 20250914
  Transmission Date: 20251021
  Serious: Yes (Other)
  Sender: SANOFI AVENTIS
  Company Number: US-SA-2025SA271293

PATIENT
  Age: 39 Year
  Sex: Female

DRUGS (1)
  1. DUPIXENT [Suspect]
     Active Substance: DUPILUMAB
     Indication: Dermatitis atopic
     Dosage: 300 MG, QOW
     Route: 058

REACTIONS (6)
  - Hypothyroidism [Unknown]
  - Asthma [Unknown]
  - Sleep apnoea syndrome [Unknown]
  - Migraine [Unknown]
  - Aphthous ulcer [Not Recovered/Not Resolved]
  - Pruritus [Unknown]
